FAERS Safety Report 8275841-3 (Version None)
Quarter: 2012Q2

REPORT INFORMATION
  Report Type: 
  Country: None (occurrence: None)
  Receive Date: 20120410
  Receipt Date: 20120410
  Transmission Date: 20120825
  Serious: Yes (Hospitalization)
  Sender: FDA-Public Use
  Company Number: None

PATIENT
  Sex: Male
  Weight: 83 kg

DRUGS (2)
  1. BEVACIZUMAB (RHUMAB VEGF) [Suspect]
     Dosage: 1220 MG
  2. PEMETREXED [Suspect]
     Dosage: 990 MG

REACTIONS (2)
  - HAEMOPTYSIS [None]
  - HAEMORRHAGE [None]
